FAERS Safety Report 9319507 (Version 4)
Quarter: 2015Q4

REPORT INFORMATION
  Report Type: Spontaneous
  Country: US (occurrence: US)
  Receive Date: 20130530
  Receipt Date: 20151027
  Transmission Date: 20160305
  Serious: No
  Sender: FDA-Public Use
  Company Number: US-GLAXOSMITHKLINE-A0993363A

PATIENT
  Age: 38 Year
  Sex: Female

DRUGS (8)
  1. FLOLAN [Suspect]
     Active Substance: EPOPROSTENOL SODIUM
     Indication: PULMONARY HYPERTENSION
     Dosage: UNK
     Dates: start: 20080904
  2. FLOLAN [Suspect]
     Active Substance: EPOPROSTENOL SODIUM
     Dosage: 48 NG/KG/MIN CONTINUOUS; CONCENTRATION: 45,000 NG/ML; PUMP RATE: 92 ML/DAY; VIAL STRENGTH: 1.5 MG/ML
     Dates: start: 20080904
  3. FLOLAN [Suspect]
     Active Substance: EPOPROSTENOL SODIUM
     Dosage: 48 NG/KG/MIN CONTINUOUS
     Route: 042
  4. FLOLAN [Suspect]
     Active Substance: EPOPROSTENOL SODIUM
     Indication: COR PULMONALE CHRONIC
     Dosage: 49.NG/KG/MINUTE CONTINOUSLYDOSE 48 NG/KG/MIN, CONCENTRATION 45,000 NG/ML, PUMP RATE 92 ML/DAY, [...]
     Route: 042
     Dates: start: 20080904
  5. OPSUMIT [Suspect]
     Active Substance: MACITENTAN
     Indication: PRODUCT USED FOR UNKNOWN INDICATION
     Route: 065
  6. FLOLAN [Suspect]
     Active Substance: EPOPROSTENOL SODIUM
     Dosage: UNK
     Dates: start: 20080904
  7. FLOLAN [Suspect]
     Active Substance: EPOPROSTENOL SODIUM
     Dosage: UNK
     Dates: start: 20080904
  8. REVATIO [Concomitant]
     Active Substance: SILDENAFIL CITRATE

REACTIONS (16)
  - Cough [Unknown]
  - Nausea [Unknown]
  - Pallor [Unknown]
  - Diarrhoea [Unknown]
  - Hyperaesthesia [Unknown]
  - Headache [Recovered/Resolved]
  - Erythema [Unknown]
  - Oropharyngeal pain [Recovered/Resolved]
  - Pruritus [Unknown]
  - Nervousness [Unknown]
  - Urinary tract infection [Not Recovered/Not Resolved]
  - Dermatitis contact [Unknown]
  - Device leakage [Recovered/Resolved]
  - Device alarm issue [Unknown]
  - Feeling abnormal [Unknown]
  - Nasopharyngitis [Unknown]

NARRATIVE: CASE EVENT DATE: 20120907
